FAERS Safety Report 5968688-1 (Version None)
Quarter: 2008Q4

REPORT INFORMATION
  Report Type: 
  Country: None (occurrence: None)
  Receive Date: 20081121
  Receipt Date: 20081121
  Transmission Date: 20090506
  Serious: Yes (Hospitalization)
  Sender: FDA-Public Use
  Company Number: None

PATIENT
  Sex: Female
  Weight: 45.3597 kg

DRUGS (1)
  1. TRAMADOL HCL [Suspect]
     Indication: PAIN
     Dosage: 1 PILL EVERY EIGHT HOURS PO
     Route: 048
     Dates: start: 20081024, end: 20081026

REACTIONS (3)
  - DEPRESSION [None]
  - EYE HAEMORRHAGE [None]
  - HALLUCINATION [None]
